FAERS Safety Report 9122531 (Version 1)
Quarter: 2013Q1

REPORT INFORMATION
  Report Type: Spontaneous
  Country: US (occurrence: None)
  Receive Date: 20130225
  Receipt Date: 20130225
  Transmission Date: 20140127
  Serious: No
  Sender: FDA-Public Use
  Company Number: None

PATIENT
  Sex: 0

DRUGS (2)
  1. RIZATRIPTAN 10MG APOTEX CORP [Suspect]
     Indication: MIGRAINE
     Dosage: RIZATRIPTAN 10MG 2 TABS PO
     Route: 048
     Dates: start: 20130210
  2. RIZATRIPTAN 10 MG APOTEX CORP [Suspect]
     Dosage: 10 MG 1 TAB PO
     Route: 048
     Dates: start: 20130215

REACTIONS (4)
  - Chest pain [None]
  - Chest discomfort [None]
  - Pain in extremity [None]
  - Product substitution issue [None]
